FAERS Safety Report 17120488 (Version 1)
Quarter: 2019Q4

REPORT INFORMATION
  Report Type: Report from Study
  Country: GB (occurrence: GB)
  Receive Date: 20191206
  Receipt Date: 20191206
  Transmission Date: 20200122
  Serious: Yes (Hospitalization)
  Sender: FDA-Public Use
  Company Number: GB-TAIHO ONCOLOGY  INC-IM-2019-00620

PATIENT
  Age: 66 Year
  Sex: Male
  Weight: 116.5 kg

DRUGS (8)
  1. TAMSULOSIN [Concomitant]
     Active Substance: TAMSULOSIN
     Indication: PROSTATOMEGALY
     Dosage: 400 MICROGRAM, QD
     Route: 048
     Dates: start: 201811
  2. PREGABALIN. [Concomitant]
     Active Substance: PREGABALIN
     Indication: SCOLIOSIS
     Dosage: 150 MG, QD
     Route: 048
     Dates: start: 2017
  3. BEVACIZUMAB. [Suspect]
     Active Substance: BEVACIZUMAB
     Dosage: 604 MG (5 MG/KG), IV, ON DAY 1 AND 15 OF EACH 28- DAY CYCLE
     Route: 042
     Dates: start: 20191126, end: 20191126
  4. MORPHINE SULFATE. [Concomitant]
     Active Substance: MORPHINE SULFATE
     Indication: SCOLIOSIS
     Dosage: 90 MG, QD
     Route: 048
     Dates: start: 2014
  5. LONSURF [Suspect]
     Active Substance: TIPIRACIL HYDROCHLORIDE\TRIFLURIDINE
     Indication: COLORECTAL CANCER METASTATIC
     Dosage: 80 MG (35 MG/M2), BID,ORALLY,  ON DAY 1-5 AND 8-12 OF EACH 28- DAY CYCLE (START DATE TO BE CONFIRMED
     Route: 048
     Dates: start: 20190924, end: 20191031
  6. BEVACIZUMAB. [Suspect]
     Active Substance: BEVACIZUMAB
     Indication: COLORECTAL CANCER METASTATIC
     Dosage: 604 MG (5 MG/KG), IV, ON DAY 1 AND 15 OF EACH 28- DAY CYCLE
     Route: 042
     Dates: start: 20190924, end: 20190924
  7. BEVACIZUMAB. [Suspect]
     Active Substance: BEVACIZUMAB
     Dosage: 604 MG (5 MG/KG), IV, ON DAY 1 AND 15 OF EACH 28- DAY CYCLE
     Route: 042
     Dates: start: 20191022, end: 20191022
  8. COCODAMOL [Concomitant]
     Active Substance: ACETAMINOPHEN\CODEINE PHOSPHATE
     Indication: SCOLIOSIS
     Dosage: 500 MG, PRN
     Route: 048
     Dates: start: 1992

REACTIONS (3)
  - Nausea [Recovered/Resolved]
  - Diarrhoea [Not Recovered/Not Resolved]
  - Dehydration [Not Recovered/Not Resolved]

NARRATIVE: CASE EVENT DATE: 20191103
